FAERS Safety Report 8549186-8 (Version None)
Quarter: 2012Q3

REPORT INFORMATION
  Report Type: 
  Country: None (occurrence: None)
  Receive Date: 20120730
  Receipt Date: 20120716
  Transmission Date: 20120928
  Serious: No
  Sender: FDA-Public Use
  Company Number: US-BAYER-2012-071808

PATIENT
  Age: 79 Year
  Sex: Female
  Weight: 50 kg

DRUGS (4)
  1. ADVAIR DISKUS 100/50 [Concomitant]
  2. ALEVE (CAPLET) [Suspect]
     Indication: ANALGESIC THERAPY
     Dosage: 2 DF, QD
     Route: 048
     Dates: start: 20110701
  3. SINGULAIR [Concomitant]
  4. ENALAPRIL MALEATE [Concomitant]

REACTIONS (1)
  - NO ADVERSE EVENT [None]
